FAERS Safety Report 4433859-2 (Version None)
Quarter: 2004Q3

REPORT INFORMATION
  Report Type: 
  Country: None (occurrence: None)
  Receive Date: 20040826
  Receipt Date: 19990727
  Transmission Date: 20050211
  Serious: Yes (Hospitalization)
  Sender: FDA-Public Use
  Company Number: FR-GLAXOSMITHKLINE-B0069073A

PATIENT
  Age: 1 Day
  Sex: Male
  Weight: 2.9 kg

DRUGS (6)
  1. ZIDOVUDINE [Suspect]
     Indication: ANTIVIRAL PROPHYLAXIS
     Dosage: .8ML THREE TIMES PER DAY
     Route: 048
  2. RETROVIR [Suspect]
     Indication: HIV INFECTION
  3. SODIUM IRONEDETATE [Concomitant]
  4. FOLIC ACID [Concomitant]
  5. PENTACOQ [Concomitant]
     Dates: start: 19990315
  6. BCG [Concomitant]
     Dates: start: 19990205

REACTIONS (11)
  - ANAEMIA [None]
  - BLOOD LACTIC ACID INCREASED [None]
  - DEVELOPMENTAL COORDINATION DISORDER [None]
  - DEVELOPMENTAL DELAY [None]
  - DRUG EXPOSURE DURING PREGNANCY [None]
  - HYPERKALAEMIA [None]
  - LIPASE DECREASED [None]
  - METABOLIC DISORDER [None]
  - NEUTROPENIA [None]
  - SICKLE CELL ANAEMIA [None]
  - SPEECH DISORDER [None]
